FAERS Safety Report 5193463-8 (Version None)
Quarter: 2006Q4

REPORT INFORMATION
  Report Type: 
  Country: None (occurrence: None)
  Receive Date: 20061228
  Receipt Date: 20060427
  Transmission Date: 20070319
  Serious: No
  Sender: FDA-Public Use
  Company Number: US-GLAXOSMITHKLINE-A0603913A

PATIENT

DRUGS (2)
  1. FLONASE [Suspect]
     Indication: DRUG USE FOR UNKNOWN INDICATION
     Dosage: 1SPR UNKNOWN
     Route: 045
  2. ALCOHOL [Suspect]

REACTIONS (5)
  - COUGH [None]
  - DRUG INTERACTION [None]
  - NASAL CONGESTION [None]
  - NASAL DISORDER [None]
  - SENSATION OF PRESSURE [None]
